FAERS Safety Report 25307329 (Version 1)
Quarter: 2025Q2

REPORT INFORMATION
  Report Type: Spontaneous
  Country: GR (occurrence: None)
  Receive Date: 20250513
  Receipt Date: 20250513
  Transmission Date: 20250717
  Serious: Yes (Death)
  Sender: INCYTE
  Company Number: GR-002147023-NVSC2025GR073410

PATIENT

DRUGS (1)
  1. RUXOLITINIB [Suspect]
     Active Substance: RUXOLITINIB
     Indication: Polycythaemia vera
     Route: 065

REACTIONS (1)
  - Death [Fatal]
